FAERS Safety Report 9424202 (Version 1)
Quarter: 2013Q3

REPORT INFORMATION
  Report Type: Spontaneous
  Country: IL (occurrence: IL)
  Receive Date: 20130729
  Receipt Date: 20130729
  Transmission Date: 20140515
  Serious: Yes (Hospitalization)
  Sender: FDA-Public Use
  Company Number: IL-RANBAXY-2010US-32688

PATIENT
  Age: 62 Year
  Sex: Female

DRUGS (7)
  1. ENALAPRIL MALEATE [Suspect]
     Indication: HYPERTENSION
     Dosage: 5 MG, TID
     Route: 065
  2. ATENOLOL [Suspect]
     Indication: HYPERTENSION
     Dosage: UNK
     Route: 065
  3. FUROSEMIDE [Concomitant]
     Indication: HYPERTENSION
     Dosage: UNK
     Route: 065
  4. THEOPHYLLINE [Concomitant]
     Indication: CHRONIC OBSTRUCTIVE PULMONARY DISEASE
     Dosage: UNK
     Route: 065
  5. SALBUTAMOL [Concomitant]
     Indication: CHRONIC OBSTRUCTIVE PULMONARY DISEASE
     Dosage: UNK
     Route: 055
  6. DILTIAZEM [Concomitant]
     Indication: ANGINA UNSTABLE
     Dosage: 60 MG, TID
     Route: 065
  7. NITROGLYCERIN [Concomitant]
     Indication: ANGINA UNSTABLE
     Dosage: UNK
     Route: 065

REACTIONS (1)
  - Dermatitis psoriasiform [Recovered/Resolved]
